FAERS Safety Report 8113798-6 (Version None)
Quarter: 2012Q1

REPORT INFORMATION
  Report Type: 
  Country: None (occurrence: None)
  Receive Date: 20120203
  Receipt Date: 20120126
  Transmission Date: 20120608
  Serious: Yes (Hospitalization)
  Sender: FDA-Public Use
  Company Number: US-TEVA-319698USA

PATIENT
  Age: 57 Year
  Sex: Female
  Weight: 62.5 kg

DRUGS (12)
  1. NEUPOGEN [Suspect]
     Indication: NON-HODGKIN'S LYMPHOMA
     Route: 058
     Dates: start: 20120126
  2. MAGNESIUM OXIDE [Concomitant]
  3. GRANISETRON [Concomitant]
  4. VALACICLOVIR [Concomitant]
  5. NICOTINE [Concomitant]
     Route: 062
  6. BENDAMUSTINE [Suspect]
     Indication: NON-HODGKIN'S LYMPHOMA
     Route: 042
     Dates: start: 20120122
  7. ETOPOSIDE [Suspect]
     Indication: NON-HODGKIN'S LYMPHOMA
     Route: 042
     Dates: start: 20120122
  8. WARFARIN SODIUM [Concomitant]
  9. DEXAMETHASONE [Suspect]
     Indication: NON-HODGKIN'S LYMPHOMA
     Route: 048
     Dates: start: 20120122
  10. IRON FREE MULTIVITAMIN [Concomitant]
  11. TRAZODONE HCL [Concomitant]
  12. ERGOCALCIFEROL [Concomitant]

REACTIONS (1)
  - TUMOUR LYSIS SYNDROME [None]
